FAERS Safety Report 9888940 (Version 3)
Quarter: 2014Q1

REPORT INFORMATION
  Report Type: Spontaneous
  Country: JP (occurrence: JP)
  Receive Date: 20140211
  Receipt Date: 20140225
  Transmission Date: 20141002
  Serious: Yes (Hospitalization)
  Sender: FDA-Public Use
  Company Number: JP-GLAXOSMITHKLINE-B0966796A

PATIENT
  Age: 55 Year
  Sex: Male

DRUGS (6)
  1. REQUIP [Suspect]
     Indication: PARKINSON^S DISEASE
     Dosage: 8MG PER DAY
     Route: 048
     Dates: start: 20130920, end: 20140123
  2. BASEN [Concomitant]
     Indication: DIABETES MELLITUS
     Dosage: .3MG THREE TIMES PER DAY
     Route: 048
  3. LINAGLIPTIN [Concomitant]
     Indication: DIABETES MELLITUS
     Dosage: 5MG PER DAY
     Route: 048
  4. ATELEC [Concomitant]
     Indication: HYPERTENSION
     Dosage: 5MG PER DAY
     Route: 048
  5. LOCHOL [Concomitant]
     Indication: DYSLIPIDAEMIA
     Dosage: 30MG PER DAY
     Route: 048
  6. URINORM [Concomitant]
     Indication: HYPERURICAEMIA
     Dosage: 50MG PER DAY
     Route: 048
     Dates: start: 20120924, end: 20131216

REACTIONS (4)
  - Renal impairment [Not Recovered/Not Resolved]
  - Oedema [Recovering/Resolving]
  - Blood pressure increased [Not Recovered/Not Resolved]
  - Weight increased [Not Recovered/Not Resolved]
